FAERS Safety Report 15905003 (Version 1)
Quarter: 2019Q1

REPORT INFORMATION
  Report Type: Spontaneous
  Country: US (occurrence: US)
  Receive Date: 20190204
  Receipt Date: 20190204
  Transmission Date: 20190417
  Serious: Yes (Hospitalization)
  Sender: FDA-Public Use
  Company Number: US-ROCHE-2257186

PATIENT
  Age: 53 Year
  Sex: Male

DRUGS (4)
  1. ASPIRIN. [Concomitant]
     Active Substance: ASPIRIN
     Route: 065
  2. ACTIVASE [Suspect]
     Active Substance: ALTEPLASE
     Indication: CEREBROVASCULAR ACCIDENT
     Dosage: ONGOING:NO
     Route: 065
     Dates: start: 20190127
  3. LIPITOR [Concomitant]
     Active Substance: ATORVASTATIN CALCIUM
     Dosage: ONGOING:YES
     Route: 065
  4. SODIUM BICARB [Concomitant]
     Active Substance: SODIUM BICARBONATE
     Dosage: ONGOING:YES
     Route: 065

REACTIONS (2)
  - Seizure [Recovered/Resolved]
  - Status epilepticus [Unknown]

NARRATIVE: CASE EVENT DATE: 20190127
